FAERS Safety Report 9353008 (Version 1)
Quarter: 2013Q2

REPORT INFORMATION
  Report Type: Spontaneous
  Country: FR (occurrence: FR)
  Receive Date: 20130618
  Receipt Date: 20130618
  Transmission Date: 20140414
  Serious: Yes (Hospitalization)
  Sender: FDA-Public Use
  Company Number: FR-PERRIGO-13FR006226

PATIENT
  Age: 41 Year
  Sex: Female

DRUGS (1)
  1. MESALAMINE RX 66.667 MG/ML 2N9 [Suspect]
     Indication: CROHN^S DISEASE
     Dosage: UNK, UNK
     Route: 065

REACTIONS (2)
  - Myocarditis [Recovered/Resolved]
  - Angina pectoris [Recovered/Resolved]
